FAERS Safety Report 17064985 (Version 1)
Quarter: 2019Q4

REPORT INFORMATION
  Report Type: Spontaneous
  Country: US (occurrence: US)
  Receive Date: 20191023
  Receipt Date: 20191023
  Transmission Date: 20200122
  Serious: Yes (Hospitalization)
  Sender: FDA-Public Use
  Company Number: None

PATIENT
  Age: 64 Year
  Sex: Female
  Weight: 83.4 kg

DRUGS (12)
  1. ACYCLOVIR. [Concomitant]
     Active Substance: ACYCLOVIR
  2. PROTONIX [Concomitant]
     Active Substance: PANTOPRAZOLE SODIUM
  3. ALLOPURINOL. [Concomitant]
     Active Substance: ALLOPURINOL
  4. ALTEPLASE. [Concomitant]
     Active Substance: ALTEPLASE
  5. DEXAMETHASONE. [Concomitant]
     Active Substance: DEXAMETHASONE
  6. CYTARABINE. [Suspect]
     Active Substance: CYTARABINE
     Dates: end: 20191006
  7. FUROSEMIDE. [Concomitant]
     Active Substance: FUROSEMIDE
  8. IMDUR [Concomitant]
     Active Substance: ISOSORBIDE MONONITRATE
  9. FLUCONAZOLE. [Concomitant]
     Active Substance: FLUCONAZOLE
  10. DAUNORUBICIN [Suspect]
     Active Substance: DAUNORUBICIN
     Dates: end: 20191002
  11. CALCIUM ACETATE. [Concomitant]
     Active Substance: CALCIUM ACETATE
  12. LEVAQUIN [Concomitant]
     Active Substance: LEVOFLOXACIN

REACTIONS (6)
  - Hyponatraemia [None]
  - Febrile neutropenia [None]
  - Anaemia [None]
  - Lymphocyte count decreased [None]
  - Neutrophil count decreased [None]
  - Thrombocytopenia [None]

NARRATIVE: CASE EVENT DATE: 20191002
